FAERS Safety Report 11054483 (Version 1)
Quarter: 2015Q2

REPORT INFORMATION
  Report Type: Spontaneous
  Country: CA (occurrence: None)
  Receive Date: 20150420
  Receipt Date: 20150420
  Transmission Date: 20150821
  Serious: Yes (Death, Other)
  Sender: FDA-Public Use
  Company Number: 2015CA003279

PATIENT
  Age: 88 Year
  Sex: Male

DRUGS (1)
  1. ELIGARD [Suspect]
     Active Substance: LEUPROLIDE ACETATE
     Dates: end: 20150115

REACTIONS (3)
  - Pleural effusion [None]
  - Cardiac failure congestive [None]
  - Renal failure [None]

NARRATIVE: CASE EVENT DATE: 201501
